FAERS Safety Report 4407039-0 (Version None)
Quarter: 2004Q3

REPORT INFORMATION
  Report Type: 
  Country: None (occurrence: None)
  Receive Date: 20040715
  Receipt Date: 20040705
  Transmission Date: 20050211
  Serious: Yes (Death)
  Sender: FDA-Public Use
  Company Number: JP-JNJFOC-20031204156

PATIENT
  Age: 71 Year
  Sex: Male

DRUGS (21)
  1. FENTANYL [Suspect]
     Indication: CANCER PAIN
     Dosage: SEE IMAGE
     Route: 062
     Dates: start: 20031019, end: 20031110
  2. FENTANYL [Suspect]
     Indication: CANCER PAIN
     Dosage: SEE IMAGE
     Route: 062
     Dates: start: 20031007, end: 20041018
  3. LOXOPROFEM SODIUM (LOXOPROFEN SODIUM) [Concomitant]
  4. BPERISONE HYDROCHLORIDE (EPERISONE HYDROCHLORIDE) [Concomitant]
  5. CARBAMAZEPINE [Concomitant]
  6. MORPHINE [Concomitant]
  7. DICLOFENAC SODIUM [Concomitant]
  8. MAGNESIUM OXIDE (MAGNESIUM OXIDE) [Concomitant]
  9. BIFIDOBACTERIUM (PROBUCOL) [Concomitant]
  10. PREDNISOLONE [Concomitant]
  11. UFT [Concomitant]
  12. ETIZOLAM (ETIZOLAM) [Concomitant]
  13. LANSOPRAZOLE [Concomitant]
  14. FLUNITRAZEPAM (FLUNITRAZEPAM) [Concomitant]
  15. CEFTRIAXONE [Concomitant]
  16. METOCLOPRAMIDE [Concomitant]
  17. BETAMETHASONE SODIUM PHOSPHATE [Concomitant]
  18. RANITIDINE HYDROCHLORIDE [Concomitant]
  19. FOSMICIN S (FOSFOMYCIN SODIUM) [Concomitant]
  20. ARBEKACIN SULFATE (ARBEKACIN SULFATE) [Concomitant]
  21. TIENAM (TIENAM) [Concomitant]

REACTIONS (6)
  - BLOOD ALKALINE PHOSPHATASE INCREASED [None]
  - BLOOD UREA INCREASED [None]
  - CONDITION AGGRAVATED [None]
  - LUNG NEOPLASM MALIGNANT [None]
  - MALIGNANT NEOPLASM PROGRESSION [None]
  - PNEUMONIA ASPIRATION [None]
